FAERS Safety Report 15591088 (Version 2)
Quarter: 2018Q4

REPORT INFORMATION
  Report Type: Spontaneous
  Country: US (occurrence: US)
  Receive Date: 20181107
  Receipt Date: 20181231
  Transmission Date: 20190205
  Serious: No
  Sender: FDA-Public Use
  Company Number: US-PFIZER INC-2018445520

PATIENT
  Age: 75 Year
  Sex: Female

DRUGS (1)
  1. XELJANZ [Suspect]
     Active Substance: TOFACITINIB CITRATE
     Indication: COLITIS ULCERATIVE
     Dosage: UNK, 2X/DAY
     Route: 048
     Dates: start: 20181006

REACTIONS (2)
  - Alopecia [Unknown]
  - Sinusitis [Unknown]

NARRATIVE: CASE EVENT DATE: 20181029
